FAERS Safety Report 4624694-0 (Version None)
Quarter: 2005Q1

REPORT INFORMATION
  Report Type: 
  Country: None (occurrence: None)
  Receive Date: 20050107
  Receipt Date: 20040921
  Transmission Date: 20050727
  Serious: No
  Sender: FDA-Public Use
  Company Number: 233796K04USA

PATIENT
  Age: 37 Year
  Sex: Female

DRUGS (3)
  1. REBIF [Suspect]
     Indication: MULTIPLE SCLEROSIS
     Dosage: 44 MCG
     Dates: start: 20040614
  2. REBIF [Suspect]
     Indication: MULTIPLE SCLEROSIS
     Dosage: 44 MCG
     Dates: start: 20040920
  3. ANTIHYPERTENSIVES- (ANTIHYPERTENSIVES) [Concomitant]

REACTIONS (12)
  - AMNESIA [None]
  - CONDITION AGGRAVATED [None]
  - DYSKINESIA [None]
  - HALLUCINATION [None]
  - INJECTION SITE PAIN [None]
  - MEMORY IMPAIRMENT [None]
  - MULTIPLE SCLEROSIS [None]
  - MUSCULAR WEAKNESS [None]
  - MYALGIA [None]
  - TREMOR [None]
  - URINARY RETENTION [None]
  - VISUAL ACUITY REDUCED [None]
